FAERS Safety Report 9738902 (Version 1)
Quarter: 2013Q4

REPORT INFORMATION
  Report Type: Spontaneous
  Country: US (occurrence: US)
  Receive Date: 20131209
  Receipt Date: 20131209
  Transmission Date: 20140711
  Serious: Yes (Other)
  Sender: FDA-Public Use
  Company Number: US-AMGEN-USASP2013086244

PATIENT
  Age: 52 Year
  Sex: Female

DRUGS (1)
  1. ENBREL [Suspect]
     Indication: ANKYLOSING SPONDYLITIS
     Dosage: 40 MG, QWK
     Route: 065
     Dates: start: 20130308, end: 201308

REACTIONS (5)
  - Aphonia [Not Recovered/Not Resolved]
  - Vocal cord thickening [Recovered/Resolved]
  - Laryngitis fungal [Not Recovered/Not Resolved]
  - Oral fungal infection [Not Recovered/Not Resolved]
  - Influenza [Recovered/Resolved]
